FAERS Safety Report 5303691-6 (Version None)
Quarter: 2007Q2

REPORT INFORMATION
  Report Type: 
  Country: None (occurrence: None)
  Receive Date: 20070420
  Receipt Date: 20070416
  Transmission Date: 20071010
  Serious: Yes (Other)
  Sender: FDA-Public Use
  Company Number: US-GENENTECH-236739

PATIENT
  Sex: Female

DRUGS (4)
  1. AVASTIN [Suspect]
     Indication: NON-SMALL CELL LUNG CANCER
     Dosage: UNK, UNK
     Dates: start: 20060201, end: 20060901
  2. CARBOPLATIN [Concomitant]
     Indication: NON-SMALL CELL LUNG CANCER
     Dates: start: 20060201
  3. TAXOL [Concomitant]
     Indication: NON-SMALL CELL LUNG CANCER
     Dates: start: 20060201
  4. ZOMETA [Concomitant]
     Indication: NON-SMALL CELL LUNG CANCER
     Dates: start: 20060201

REACTIONS (1)
  - PLEURAL EFFUSION [None]
